FAERS Safety Report 7451682-1 (Version None)
Quarter: 2011Q2

REPORT INFORMATION
  Report Type: 
  Country: None (occurrence: None)
  Receive Date: 20110502
  Receipt Date: 20100716
  Transmission Date: 20111010
  Serious: No
  Sender: FDA-Public Use
  Company Number: US-ASTRAZENECA-2010SE33450

PATIENT
  Age: 1018 Month
  Sex: Female
  Weight: 60.8 kg

DRUGS (3)
  1. NEXIUM [Suspect]
     Indication: GASTROOESOPHAGEAL REFLUX DISEASE
     Route: 048
     Dates: start: 20070101, end: 20100601
  2. NEXIUM [Suspect]
     Route: 048
     Dates: start: 20100101
  3. PRILOSEC OTC [Suspect]
     Route: 048
     Dates: start: 20100601, end: 20100101

REACTIONS (3)
  - DRUG DOSE OMISSION [None]
  - DRUG INEFFECTIVE [None]
  - DYSPEPSIA [None]
